FAERS Safety Report 4854797-7 (Version None)
Quarter: 2005Q4

REPORT INFORMATION
  Report Type: 
  Country: None (occurrence: None)
  Receive Date: 20051215
  Receipt Date: 20051102
  Transmission Date: 20060501
  Serious: Yes (Other)
  Sender: FDA-Public Use
  Company Number: PHEH2005US12110

PATIENT
  Age: 75 Year
  Sex: Female
  Weight: 63.038 kg

DRUGS (7)
  1. ZOMETA [Suspect]
     Indication: METASTASES TO BONE
     Dosage: 4 MG, UNK
     Route: 042
     Dates: start: 20030610, end: 20051115
  2. ZOMETA [Suspect]
     Dosage: 4 MG, UNK
     Route: 042
     Dates: start: 20051018
  3. FASLODEX [Concomitant]
     Indication: BREAST CANCER METASTATIC
     Dosage: UNK , UNK
     Route: 030
     Dates: start: 20050202
  4. TAXOL [Concomitant]
     Indication: BREAST CANCER
     Dosage: 300 UNK, UNK
     Dates: start: 20031111, end: 20040323
  5. HERCEPTIN [Concomitant]
     Indication: TUMOUR MARKER TEST
     Dosage: 134 MG, QW
     Dates: start: 20040323
  6. TAXOTERE [Concomitant]
     Indication: BREAST CANCER
     Dosage: 140 MG, QW
     Dates: start: 20040323, end: 20040518
  7. XELODA [Concomitant]
     Indication: BREAST CANCER
     Dosage: 500 MG, UNK
     Dates: start: 20030801, end: 20031111

REACTIONS (14)
  - ACTINOMYCOSIS [None]
  - BONE DEBRIDEMENT [None]
  - BONE DISORDER [None]
  - CUTANEOUS LUPUS ERYTHEMATOSUS [None]
  - DENTAL TREATMENT [None]
  - DIABETES MELLITUS [None]
  - METASTASES TO SPINE [None]
  - ORAL SOFT TISSUE DISORDER [None]
  - OSTEOMYELITIS [None]
  - OSTEOMYELITIS ACUTE [None]
  - OSTEONECROSIS [None]
  - PAIN [None]
  - PAIN IN JAW [None]
  - ULCER [None]
